FAERS Safety Report 7940655-8 (Version None)
Quarter: 2011Q4

REPORT INFORMATION
  Report Type: 
  Country: None (occurrence: None)
  Receive Date: 20111114
  Receipt Date: 20101109
  Transmission Date: 20120403
  Serious: Yes (Hospitalization)
  Sender: FDA-Public Use
  Company Number: 2010S1001372

PATIENT
  Age: 43 Year
  Sex: Male
  Weight: 106.4 kg

DRUGS (16)
  1. PIOGLITAZONE [Concomitant]
  2. CALCIUM CITRATE W/VITAMIN D NOS [Concomitant]
  3. DILAUDID [Concomitant]
  4. LUMIGAN [Concomitant]
  5. INSULIN [Concomitant]
  6. ACETAMINOPHEN [Concomitant]
  7. PROCHLORPERAZINE MALEATE [Concomitant]
  8. CUBICIN [Suspect]
     Indication: PERIORBITAL CELLULITIS
     Dosage: 6 MG/KG;Q24H;IV
     Route: 042
     Dates: start: 20100826, end: 20100909
  9. CUBICIN [Suspect]
     Indication: BACTERAEMIA
     Dosage: 6 MG/KG;Q24H;IV
     Route: 042
     Dates: start: 20100826, end: 20100909
  10. MAGNESIUM SULFATE [Concomitant]
  11. VENLFAXINE [Concomitant]
  12. FENOFIBRATE [Concomitant]
  13. LANTUS [Concomitant]
  14. FEXOFENADINE [Concomitant]
  15. GLIPIZIDE [Concomitant]
  16. OMEPRAZOLE [Concomitant]

REACTIONS (3)
  - RENAL FAILURE [None]
  - RHABDOMYOLYSIS [None]
  - BLOOD CREATINE PHOSPHOKINASE INCREASED [None]
